FAERS Safety Report 21370635 (Version 5)
Quarter: 2022Q4

REPORT INFORMATION
  Report Type: Spontaneous
  Country: US (occurrence: US)
  Receive Date: 20220923
  Receipt Date: 20221104
  Transmission Date: 20230113
  Serious: Yes (Other)
  Sender: FDA-Public Use
  Company Number: US-PFIZER INC-202201182143

PATIENT
  Age: 67 Year
  Sex: Female
  Weight: 55.34 kg

DRUGS (3)
  1. PAXLOVID [Suspect]
     Active Substance: NIRMATRELVIR\RITONAVIR
     Indication: COVID-19 treatment
     Dosage: [RITONAVIR 100 MG]; 2X/DAY
     Dates: start: 20220914, end: 20220919
  2. VICKS NYQUIL [Concomitant]
     Active Substance: ACETAMINOPHEN\DEXTROMETHORPHAN HYDROBROMIDE\DOXYLAMINE SUCCINATE
     Dosage: UNK
     Dates: start: 20220914
  3. VICKS DAYQUIL [Concomitant]
     Active Substance: DEXTROMETHORPHAN HYDROBROMIDE\GUAIFENESIN
     Dosage: UNK
     Dates: start: 20220914

REACTIONS (9)
  - Nausea [Recovered/Resolved]
  - Migraine [Recovered/Resolved]
  - Headache [Recovered/Resolved]
  - Diarrhoea [Recovered/Resolved]
  - Pain [Recovered/Resolved]
  - Cough [Recovered/Resolved]
  - Feeling abnormal [Recovered/Resolved]
  - Oropharyngeal pain [Recovered/Resolved]
  - Incorrect dose administered [Recovered/Resolved]

NARRATIVE: CASE EVENT DATE: 20220101
